FAERS Safety Report 4755929-1 (Version None)
Quarter: 2005Q3

REPORT INFORMATION
  Report Type: 
  Country: None (occurrence: None)
  Receive Date: 20050830
  Receipt Date: 20050823
  Transmission Date: 20060218
  Serious: Yes (Other)
  Sender: FDA-Public Use
  Company Number: US-JNJFOC-20050802395

PATIENT
  Sex: Female
  Weight: 65.55 kg

DRUGS (16)
  1. REMICADE [Suspect]
     Indication: RHEUMATOID ARTHRITIS
     Route: 042
  2. PREDNISONE [Concomitant]
  3. FOSAMAX [Concomitant]
  4. TOPROL-XL [Concomitant]
  5. HYDROCHLOROTHIAZIDE [Concomitant]
  6. MULTI-VITAMIN [Concomitant]
  7. MULTI-VITAMIN [Concomitant]
  8. MULTI-VITAMIN [Concomitant]
  9. MULTI-VITAMIN [Concomitant]
  10. MULTI-VITAMIN [Concomitant]
  11. MULTI-VITAMIN [Concomitant]
  12. MULTI-VITAMIN [Concomitant]
  13. MULTI-VITAMIN [Concomitant]
  14. ASCORBIC ACID [Concomitant]
  15. VITAMIN E [Concomitant]
  16. CALCIUM GLUCONATE [Concomitant]

REACTIONS (1)
  - B-CELL LYMPHOMA STAGE III [None]
